FAERS Safety Report 18031213 (Version 1)
Quarter: 2020Q3

REPORT INFORMATION
  Report Type: Report from Study
  Country: US (occurrence: US)
  Receive Date: 20200716
  Receipt Date: 20200716
  Transmission Date: 20201103
  Serious: Yes (Other)
  Sender: FDA-Public Use
  Company Number: NVSC2020US187173

PATIENT
  Sex: Female

DRUGS (4)
  1. CORTISONE [Concomitant]
     Active Substance: CORTISONE
     Indication: PRODUCT USED FOR UNKNOWN INDICATION
     Route: 065
  2. MAYZENT [Suspect]
     Active Substance: SIPONIMOD
     Indication: PRODUCT USED FOR UNKNOWN INDICATION
     Dosage: UNK
     Route: 065
  3. PROZAC [Concomitant]
     Active Substance: FLUOXETINE HYDROCHLORIDE
     Indication: PRODUCT USED FOR UNKNOWN INDICATION
     Route: 065
  4. BENADRYL [Concomitant]
     Active Substance: DIPHENHYDRAMINE HYDROCHLORIDE
     Indication: PRODUCT USED FOR UNKNOWN INDICATION
     Route: 065

REACTIONS (17)
  - Hypersensitivity [Unknown]
  - Chromatopsia [Unknown]
  - Photophobia [Unknown]
  - Visual impairment [Unknown]
  - Swelling [Unknown]
  - Illness [Unknown]
  - Vision blurred [Unknown]
  - Urticaria [Unknown]
  - Depression [Unknown]
  - Functional gastrointestinal disorder [Unknown]
  - Hypertension [Unknown]
  - Memory impairment [Unknown]
  - Dyspnoea [Unknown]
  - Skin ulcer [Unknown]
  - Anaemia [Unknown]
  - Uveitis [Unknown]
  - Heart rate decreased [Unknown]
